FAERS Safety Report 19764324 (Version 4)
Quarter: 2022Q2

REPORT INFORMATION
  Report Type: Report from Study
  Country: US (occurrence: US)
  Receive Date: 20210831
  Receipt Date: 20220510
  Transmission Date: 20220721
  Serious: Yes (Hospitalization, Other)
  Sender: FDA-Public Use
  Company Number: US-ABBVIE-21K-163-4057165-00

PATIENT
  Sex: Female
  Weight: 72.640 kg

DRUGS (18)
  1. HUMIRA [Suspect]
     Active Substance: ADALIMUMAB
     Indication: Psoriatic arthropathy
     Dosage: CITRATE FREE
     Route: 058
  2. HUMIRA [Suspect]
     Active Substance: ADALIMUMAB
     Indication: Psoriasis
     Dosage: CITRATE FREE
     Route: 058
  3. MODERNA COVID-19 VACCINE [Concomitant]
     Active Substance: ELASOMERAN
     Indication: COVID-19 immunisation
     Dosage: DOSE 1
     Route: 030
     Dates: start: 20210304, end: 20210304
  4. MODERNA COVID-19 VACCINE [Concomitant]
     Active Substance: ELASOMERAN
     Dosage: DOSE 2
     Route: 030
     Dates: start: 20210401, end: 20210401
  5. MODERNA COVID-19 VACCINE [Concomitant]
     Active Substance: ELASOMERAN
     Dosage: DOSE 3
     Route: 030
     Dates: start: 20210916, end: 20210916
  6. MODERNA COVID-19 VACCINE [Concomitant]
     Active Substance: ELASOMERAN
     Route: 030
     Dates: start: 20220405, end: 20220405
  7. DEPAKOTE [Concomitant]
     Active Substance: DIVALPROEX SODIUM
     Indication: Bipolar disorder
  8. REMERON [Concomitant]
     Active Substance: MIRTAZAPINE
     Indication: Bipolar disorder
  9. KLONOPIN [Concomitant]
     Active Substance: CLONAZEPAM
     Indication: Bipolar disorder
  10. MELATONIN [Concomitant]
     Active Substance: MELATONIN
     Indication: Sleep disorder
  11. BIOTIN [Concomitant]
     Active Substance: BIOTIN
     Indication: Hair texture abnormal
  12. BIOTIN [Concomitant]
     Active Substance: BIOTIN
     Indication: Dry eye
  13. BIOTIN [Concomitant]
     Active Substance: BIOTIN
     Indication: Dry skin
  14. GABAPENTIN [Concomitant]
     Active Substance: GABAPENTIN
     Indication: Diabetic neuropathy
  15. METFORMIN [Concomitant]
     Active Substance: METFORMIN HYDROCHLORIDE
     Indication: Diabetes mellitus
  16. OFLOXACIN [Concomitant]
     Active Substance: OFLOXACIN
     Indication: Eye disorder
  17. FLONASE [Concomitant]
     Active Substance: FLUTICASONE PROPIONATE
     Indication: Hypersensitivity
  18. IPRATROPIUM [Concomitant]
     Active Substance: IPRATROPIUM
     Indication: Rhinitis allergic

REACTIONS (14)
  - Spinal operation [Unknown]
  - Fall [Unknown]
  - Malaise [Unknown]
  - Osteoporosis [Unknown]
  - Back disorder [Unknown]
  - Spinal fracture [Unknown]
  - Upper limb fracture [Recovered/Resolved]
  - Electrolyte imbalance [Recovered/Resolved]
  - Joint range of motion decreased [Not Recovered/Not Resolved]
  - Dysstasia [Unknown]
  - Dislocation of vertebra [Recovering/Resolving]
  - Arthralgia [Unknown]
  - Arthralgia [Not Recovered/Not Resolved]
  - Psoriasis [Unknown]

NARRATIVE: CASE EVENT DATE: 20210101
